FAERS Safety Report 13126559 (Version 1)
Quarter: 2017Q1

REPORT INFORMATION
  Report Type: Spontaneous
  Country: US (occurrence: US)
  Receive Date: 20170118
  Receipt Date: 20170118
  Transmission Date: 20170428
  Serious: Yes (Other)
  Sender: FDA-Public Use
  Company Number: US-ROCHE-1697000

PATIENT
  Sex: Female

DRUGS (1)
  1. RITUXAN [Suspect]
     Active Substance: RITUXIMAB
     Indication: RHEUMATOID ARTHRITIS
     Dosage: ONLY GOT 90 MG^S WORTH OF IT
     Route: 042

REACTIONS (3)
  - Swollen tongue [Unknown]
  - Oral pruritus [Unknown]
  - Throat irritation [Unknown]
